FAERS Safety Report 19477564 (Version 8)
Quarter: 2022Q2

REPORT INFORMATION
  Report Type: Spontaneous
  Country: US (occurrence: US)
  Receive Date: 20210630
  Receipt Date: 20220609
  Transmission Date: 20220720
  Serious: Yes (Other)
  Sender: FDA-Public Use
  Company Number: US-GLAXOSMITHKLINE-US2021136023

PATIENT

DRUGS (6)
  1. ZEJULA [Suspect]
     Active Substance: NIRAPARIB
     Indication: Ovarian cancer
     Dosage: 200 MG, QD
     Route: 048
     Dates: start: 20210611
  2. ZEJULA [Suspect]
     Active Substance: NIRAPARIB
     Dosage: 100 MG, QD
     Route: 048
     Dates: start: 202107
  3. ZEJULA [Suspect]
     Active Substance: NIRAPARIB
     Dosage: 100 MG, QD
     Route: 048
     Dates: start: 2021
  4. ZEJULA [Suspect]
     Active Substance: NIRAPARIB
     Dosage: 100 MG, QD
  5. ZEJULA [Suspect]
     Active Substance: NIRAPARIB
     Dosage: 100 MG, QD
  6. ZEJULA [Suspect]
     Active Substance: NIRAPARIB
     Dosage: 100 MG, QD, PM

REACTIONS (23)
  - Ureteric stenosis [Unknown]
  - Blood pressure increased [Unknown]
  - Feeling abnormal [Not Recovered/Not Resolved]
  - Nausea [Unknown]
  - Palpitations [Unknown]
  - Insomnia [Not Recovered/Not Resolved]
  - Oropharyngeal discomfort [Unknown]
  - Pyrexia [Unknown]
  - Pain [Unknown]
  - Tongue disorder [Unknown]
  - Platelet count decreased [Not Recovered/Not Resolved]
  - Kidney enlargement [Unknown]
  - Balance disorder [Unknown]
  - Laboratory test abnormal [Unknown]
  - Pruritus [Unknown]
  - Pain in extremity [Unknown]
  - Asthenia [Unknown]
  - Trigger finger [Unknown]
  - Large intestine polyp [Unknown]
  - Rash [Unknown]
  - Body temperature increased [Unknown]
  - Carbohydrate antigen 125 increased [Unknown]
  - Product dose omission in error [Unknown]
